FAERS Safety Report 15632881 (Version 1)
Quarter: 2018Q4

REPORT INFORMATION
  Report Type: Spontaneous
  Country: US (occurrence: US)
  Receive Date: 20181113
  Receipt Date: 20181113
  Transmission Date: 20190205
  Serious: Yes (Hospitalization, Other)
  Sender: FDA-Public Use
  Company Number: None

PATIENT

DRUGS (1)
  1. NORMAL SALINE [Suspect]
     Active Substance: SODIUM CHLORIDE
     Indication: NEOPLASM MALIGNANT
     Dosage: ?          OTHER FREQUENCY:EVERY 14 DAYS;?
     Route: 041
     Dates: start: 20181003

REACTIONS (9)
  - Feeling cold [None]
  - Infusion related reaction [None]
  - Hypertension [None]
  - Chest pain [None]
  - Heart rate increased [None]
  - Chest discomfort [None]
  - Nausea [None]
  - Blood lactic acid increased [None]
  - Dyspnoea [None]

NARRATIVE: CASE EVENT DATE: 20181003
